FAERS Safety Report 8033381-0 (Version None)
Quarter: 2012Q1

REPORT INFORMATION
  Report Type: 
  Country: None (occurrence: None)
  Receive Date: 20120110
  Receipt Date: 20120104
  Transmission Date: 20120608
  Serious: Yes (Other)
  Sender: FDA-Public Use
  Company Number: PHEH2007US03973

PATIENT
  Sex: Female
  Weight: 67.12 kg

DRUGS (8)
  1. HORMONES [Suspect]
     Indication: MENOPAUSE
     Dates: start: 19880101, end: 19890101
  2. PROVERA [Suspect]
     Indication: MENOPAUSE
     Dosage: 2.5 MG, UNK
     Route: 048
     Dates: start: 19910818, end: 19950829
  3. PREMPRO [Suspect]
     Indication: MENOPAUSE
     Dosage: .625/2.5 MG
     Route: 048
     Dates: start: 19950501, end: 19990112
  4. PREMARIN [Suspect]
     Indication: MENOPAUSE
     Dosage: 0.9 MG, UNK
     Route: 048
     Dates: start: 19910508, end: 19910515
  5. ANUSOL HC [Concomitant]
  6. H2 BLOCKER ^RATIOPHARM^ [Concomitant]
  7. PREMARIN [Suspect]
     Dosage: 0.625 MG, UNK
     Route: 048
     Dates: start: 19910516, end: 19950829
  8. ESTRADERM [Suspect]
     Indication: MENOPAUSE
     Dosage: 0.1 (UNITS NOT SPEC.) 2X WEEKLY
     Route: 062
     Dates: start: 19910818, end: 19911001

REACTIONS (52)
  - INJURY [None]
  - BREAST INDURATION [None]
  - MAMMOGRAM ABNORMAL [None]
  - DILATATION INTRAHEPATIC DUCT ACQUIRED [None]
  - RIB FRACTURE [None]
  - ORAL PAIN [None]
  - GENERAL PHYSICAL HEALTH DETERIORATION [None]
  - ABDOMINAL PAIN [None]
  - FALL [None]
  - ARTHRITIS [None]
  - OSTEOPENIA [None]
  - SINUSITIS [None]
  - MICTURITION URGENCY [None]
  - RECTAL HAEMORRHAGE [None]
  - PROCTALGIA [None]
  - BREAST CANCER [None]
  - BREAST CALCIFICATIONS [None]
  - METAPLASIA [None]
  - DEFORMITY [None]
  - PAIN [None]
  - ANXIETY [None]
  - ORAL HERPES [None]
  - POSTOPERATIVE ADHESION [None]
  - BREAST CANCER IN SITU [None]
  - EMOTIONAL DISORDER [None]
  - FIBROADENOMA OF BREAST [None]
  - INTERVERTEBRAL DISC DEGENERATION [None]
  - BILIARY DILATATION [None]
  - INTERVERTEBRAL DISC PROTRUSION [None]
  - BREAST MASS [None]
  - BIOPSY BREAST [None]
  - SPINAL DISORDER [None]
  - UTERINE PROLAPSE [None]
  - PARAESTHESIA [None]
  - MUSCLE SPASMS [None]
  - BREAST HYPERPLASIA [None]
  - FIBROCYSTIC BREAST DISEASE [None]
  - PRESYNCOPE [None]
  - OSTEOPOROSIS [None]
  - AVULSION FRACTURE [None]
  - MELANOCYTIC NAEVUS [None]
  - BREAST DISORDER [None]
  - BREAST CYST [None]
  - AORTIC ARTERIOSCLEROSIS [None]
  - LYMPH NODES SCAN ABNORMAL [None]
  - PAIN IN EXTREMITY [None]
  - CEREBRAL SMALL VESSEL ISCHAEMIC DISEASE [None]
  - ATROPHIC VULVOVAGINITIS [None]
  - BACK PAIN [None]
  - UTERINE LEIOMYOMA [None]
  - ANAEMIA [None]
  - INSOMNIA [None]
